FAERS Safety Report 8002533-8 (Version None)
Quarter: 2011Q4

REPORT INFORMATION
  Report Type: 
  Country: None (occurrence: None)
  Receive Date: 20111222
  Receipt Date: 20111219
  Transmission Date: 20120403
  Serious: Yes (Other)
  Sender: FDA-Public Use
  Company Number: US-PFIZER INC-2011246935

PATIENT
  Sex: Female

DRUGS (1)
  1. CHANTIX [Suspect]
     Dosage: UNK
     Route: 048

REACTIONS (7)
  - ANXIETY [None]
  - BLISTER [None]
  - CONFUSIONAL STATE [None]
  - BIPOLAR DISORDER [None]
  - PANIC DISORDER [None]
  - MENTAL DISORDER [None]
  - MOVEMENT DISORDER [None]
